FAERS Safety Report 4730313-5 (Version None)
Quarter: 2005Q3

REPORT INFORMATION
  Report Type: 
  Country: None (occurrence: None)
  Receive Date: 20050801
  Receipt Date: 20050719
  Transmission Date: 20060218
  Serious: Yes (Disabling)
  Sender: FDA-Public Use
  Company Number: NSADSS2002026495

PATIENT
  Age: 45 Year
  Sex: Female

DRUGS (3)
  1. LEVAQUIN [Suspect]
     Route: 048
     Dates: start: 19991201
  2. LEVOFLOXACIN [Suspect]
     Route: 041
  3. LASIX [Interacting]
     Indication: DRUG USE FOR UNKNOWN INDICATION

REACTIONS (2)
  - DEAFNESS UNILATERAL [None]
  - DRUG INTERACTION [None]
